FAERS Safety Report 7617530-1 (Version None)
Quarter: 2011Q3

REPORT INFORMATION
  Report Type: 
  Country: None (occurrence: None)
  Receive Date: 20110718
  Receipt Date: 20110707
  Transmission Date: 20111222
  Serious: Yes (Other)
  Sender: FDA-Public Use
  Company Number: US-JNJFOC-20110704881

PATIENT
  Sex: Male
  Weight: 33.3 kg

DRUGS (9)
  1. PHENOBARB [Concomitant]
     Route: 065
  2. SYNTHROID [Concomitant]
     Route: 065
  3. VALPROIC ACID [Concomitant]
     Route: 065
  4. HYDROCORTISONE [Concomitant]
     Route: 065
  5. BISACODYL [Concomitant]
     Indication: GASTROINTESTINAL DISORDER
     Route: 065
  6. CISAPRIDE [Suspect]
     Indication: GASTROOESOPHAGEAL REFLUX DISEASE
     Route: 048
     Dates: start: 19900101
  7. PREVACID [Concomitant]
     Route: 065
  8. CISAPRIDE [Suspect]
     Indication: CONVULSION
     Route: 048
     Dates: start: 19900101
  9. DILANTIN [Concomitant]
     Route: 065

REACTIONS (1)
  - ELECTROCARDIOGRAM QT PROLONGED [None]
